FAERS Safety Report 9364589 (Version 5)
Quarter: 2013Q4

REPORT INFORMATION
  Report Type: Spontaneous
  Country: GB (occurrence: GB)
  Receive Date: 20130624
  Receipt Date: 20131112
  Transmission Date: 20140711
  Serious: Yes (Hospitalization)
  Sender: FDA-Public Use
  Company Number: PHFR2013GB003580

PATIENT
  Age: 51 Year
  Sex: Male
  Weight: 57.14 kg

DRUGS (10)
  1. GLIVEC [Suspect]
     Indication: CHRONIC MYELOID LEUKAEMIA
     Dosage: 100 MG, QD
     Route: 048
     Dates: start: 20130606, end: 20130613
  2. TASIGNA [Suspect]
     Indication: CHRONIC MYELOID LEUKAEMIA
     Dosage: 400 MG, BID
     Route: 048
     Dates: start: 201203, end: 201302
  3. SPRYCEL//DASATINIB [Suspect]
     Indication: CHRONIC MYELOID LEUKAEMIA
     Dosage: 100 MG, QD
     Route: 048
     Dates: start: 20130419, end: 20130420
  4. SPRYCEL//DASATINIB [Suspect]
     Dosage: 100 MG, BID
     Route: 048
     Dates: start: 20130606, end: 20130613
  5. LANSOPRAZOLE [Suspect]
     Indication: GASTROOESOPHAGEAL REFLUX DISEASE
     Dosage: 30 MG, QD
     Route: 048
     Dates: end: 20130611
  6. AMLODIPINE [Concomitant]
     Indication: HYPERTENSION
     Dosage: 5 MG, DAILY
     Route: 048
     Dates: start: 20130611
  7. CITALOPRAM [Concomitant]
     Indication: DEPRESSION
     Dosage: 20 MG, QD
     Route: 048
  8. RANITIDINE [Concomitant]
     Indication: GASTROOESOPHAGEAL REFLUX DISEASE
     Dosage: 150 MG, DAILY
     Route: 048
     Dates: start: 20130611
  9. PEPTAC [Concomitant]
     Indication: GASTROOESOPHAGEAL REFLUX DISEASE
     Dosage: 30 ML, DAILY (10 ML TID)
     Route: 048
     Dates: start: 20130611
  10. METOCLOPRAMIDE [Concomitant]
     Indication: GASTROOESOPHAGEAL REFLUX DISEASE
     Dosage: 10 ML, QD
     Route: 048

REACTIONS (8)
  - Renal impairment [Recovering/Resolving]
  - Glomerulonephritis [Recovering/Resolving]
  - Renal vasculitis [Recovering/Resolving]
  - Malaise [Recovering/Resolving]
  - Drug intolerance [Unknown]
  - Chest pain [Unknown]
  - Rash [Unknown]
  - Headache [Unknown]
